FAERS Safety Report 9970221 (Version 1)
Quarter: 2014Q1

REPORT INFORMATION
  Report Type: Spontaneous
  Country: FR (occurrence: None)
  Receive Date: 20140304
  Receipt Date: 20140304
  Transmission Date: 20141002
  Serious: Yes (Hospitalization)
  Sender: FDA-Public Use
  Company Number: SYM-2014-17801

PATIENT
  Age: 62 Year
  Sex: Male

DRUGS (4)
  1. FLAGYL (METRONIDAZOLE) (METRONIDAZOLE) [Suspect]
     Indication: PRODUCT USED FOR UNKNOWN INDICATION
     Route: 042
     Dates: start: 201305, end: 201305
  2. ROCEPHINE [Suspect]
     Indication: PRODUCT USED FOR UNKNOWN INDICATION
     Route: 042
     Dates: start: 201305, end: 201305
  3. KESTIN (EBASTINE) (EBASTINE) [Concomitant]
  4. FLIXONASE (FLUTICASONE PROPIONATE) [Concomitant]

REACTIONS (1)
  - Cholecystitis acute [None]
